FAERS Safety Report 21870000 (Version 2)
Quarter: 2023Q2

REPORT INFORMATION
  Report Type: Report from Study
  Country: US (occurrence: US)
  Receive Date: 20230117
  Receipt Date: 20230523
  Transmission Date: 20230721
  Serious: No
  Sender: FDA-Public Use
  Company Number: US-ABBVIE-4238727

PATIENT
  Sex: Male

DRUGS (1)
  1. HUMIRA [Suspect]
     Active Substance: ADALIMUMAB
     Indication: Hidradenitis
     Dosage: CF PEN
     Route: 058
     Dates: start: 20230207

REACTIONS (3)
  - Hidradenitis [Not Recovered/Not Resolved]
  - Furuncle [Not Recovered/Not Resolved]
  - Haemorrhage [Not Recovered/Not Resolved]
